FAERS Safety Report 24179893 (Version 1)
Quarter: 2024Q3

REPORT INFORMATION
  Report Type: Spontaneous
  Country: US (occurrence: None)
  Receive Date: 20240805
  Receipt Date: 20240805
  Transmission Date: 20241017
  Serious: Yes (Other)
  Sender: Public
  Company Number: None

PATIENT
  Age: 73 Year
  Sex: Male

DRUGS (1)
  1. XDEMVY [Suspect]
     Active Substance: LOTILANER
     Indication: Demodex blepharitis
     Dosage: 1 DROP - GTT  BID INTRAOCULAR
     Route: 031
     Dates: start: 20240723, end: 20240802

REACTIONS (4)
  - Headache [None]
  - Drug hypersensitivity [None]
  - Product formulation issue [None]
  - Therapy cessation [None]

NARRATIVE: CASE EVENT DATE: 20240724
